FAERS Safety Report 8287269-0 (Version None)
Quarter: 2012Q2

REPORT INFORMATION
  Report Type: 
  Country: None (occurrence: None)
  Receive Date: 20120416
  Receipt Date: 20120416
  Transmission Date: 20120825
  Serious: No
  Sender: FDA-Public Use
  Company Number: None

PATIENT
  Age: 61 Year
  Sex: Female
  Weight: 69.853 kg

DRUGS (1)
  1. SULFAMETHOXAZOLE AND TRIMETHOPRIM [Suspect]
     Indication: EAR INFECTION
     Dosage: 1 TAB
     Dates: start: 20120411, end: 20120412

REACTIONS (2)
  - PAIN IN EXTREMITY [None]
  - DRUG HYPERSENSITIVITY [None]
